FAERS Safety Report 21257533 (Version 1)
Quarter: 2022Q3

REPORT INFORMATION
  Report Type: Other
  Country: HK (occurrence: None)
  Receive Date: 20220826
  Receipt Date: 20220826
  Transmission Date: 20221027
  Serious: Yes (Other)
  Sender: FDA-Public Use
  Company Number: HK-ROCHE-3165546

PATIENT
  Age: 58 Year
  Sex: Female

DRUGS (10)
  1. CAPECITABINE [Suspect]
     Active Substance: CAPECITABINE
     Indication: Breast cancer metastatic
     Route: 048
  2. ERIBULIN [Suspect]
     Active Substance: ERIBULIN
     Indication: Breast cancer metastatic
     Route: 065
  3. LETROZOLE [Concomitant]
     Active Substance: LETROZOLE
  4. EVEROLIMUS [Concomitant]
     Active Substance: EVEROLIMUS
  5. EXEMESTANE [Concomitant]
     Active Substance: EXEMESTANE
  6. RIBOCICLIB [Concomitant]
     Active Substance: RIBOCICLIB
  7. ALPELISIB [Concomitant]
     Active Substance: ALPELISIB
  8. METFORMIN [Concomitant]
     Active Substance: METFORMIN HYDROCHLORIDE
  9. ALOGLIPTIN [Concomitant]
     Active Substance: ALOGLIPTIN
  10. INSULIN NOS [Concomitant]
     Active Substance: INSULIN NOS
     Dosage: (30 MG OM, 16 MG PM)

REACTIONS (1)
  - Disease progression [Unknown]
